FAERS Safety Report 21727832 (Version 2)
Quarter: 2022Q4

REPORT INFORMATION
  Report Type: Report from Study
  Country: KR (occurrence: KR)
  Receive Date: 20221214
  Receipt Date: 20221215
  Transmission Date: 20230113
  Serious: Yes (Hospitalization, Disabling)
  Sender: FDA-Public Use
  Company Number: KR-BAYER-2022A164564

PATIENT
  Age: 80 Year
  Sex: Male
  Weight: 59 kg

DRUGS (22)
  1. RIVAROXABAN [Suspect]
     Active Substance: RIVAROXABAN
     Indication: Coronary artery disease
     Dosage: 2.5 MG, BID
     Route: 048
     Dates: start: 20210406, end: 20211020
  2. RIVAROXABAN [Suspect]
     Active Substance: RIVAROXABAN
     Indication: Peripheral arterial occlusive disease
     Route: 048
  3. RIVAROXABAN [Suspect]
     Active Substance: RIVAROXABAN
     Indication: Cardiovascular event prophylaxis
     Route: 048
  4. ASPIRIN [Suspect]
     Active Substance: ASPIRIN
     Indication: Coronary artery disease
     Dosage: 100 MG, QD
     Route: 065
     Dates: start: 1995
  5. ASPIRIN [Suspect]
     Active Substance: ASPIRIN
     Indication: Peripheral arterial occlusive disease
  6. ASPIRIN [Suspect]
     Active Substance: ASPIRIN
     Indication: Cardiovascular event prophylaxis
  7. BISOPROLOL FUMARATE [Concomitant]
     Active Substance: BISOPROLOL FUMARATE
     Dosage: 5 MG, QD
     Dates: start: 20161108, end: 20211226
  8. BISOPROLOL FUMARATE [Concomitant]
     Active Substance: BISOPROLOL FUMARATE
     Dosage: 2.5 MG, QD
     Dates: start: 20211227
  9. AMLODIPINE [Concomitant]
     Active Substance: AMLODIPINE BESYLATE
     Dosage: 5 MG, QD
     Dates: start: 20180427
  10. VALSARTAN [Concomitant]
     Active Substance: VALSARTAN
     Dosage: 40 MG, QD
     Dates: start: 20180427, end: 20210927
  11. ROVAZET [Concomitant]
     Dosage: 1 DF, QD
     Dates: start: 20210406, end: 20210927
  12. VIGAMOX [Concomitant]
     Active Substance: MOXIFLOXACIN HYDROCHLORIDE
     Dosage: UNK UNK, QID
     Dates: start: 20201204, end: 20211209
  13. LOTEMAX [Concomitant]
     Active Substance: LOTEPREDNOL ETABONATE
     Dosage: UNK UNK, QID
     Dates: start: 20201204, end: 20211209
  14. FEROBA YOU [Concomitant]
     Dosage: 256 MG, QD
     Dates: start: 20200407, end: 20210405
  15. ROSUVASTATIN [Concomitant]
     Active Substance: ROSUVASTATIN
     Dosage: 20 MG, QD
     Dates: start: 20170502, end: 20210405
  16. AMARYL [Concomitant]
     Active Substance: GLIMEPIRIDE
     Dosage: 2 MG, QD
     Dates: start: 20211227, end: 20211227
  17. AMARYL [Concomitant]
     Active Substance: GLIMEPIRIDE
     Dosage: 1 MG, QD
     Dates: start: 20211227
  18. DEXLANSOPRAZOLE [Concomitant]
     Active Substance: DEXLANSOPRAZOLE
     Dosage: 30 MG, QD
     Dates: start: 20211227
  19. LIPITOR [Concomitant]
     Active Substance: ATORVASTATIN CALCIUM
     Dosage: 20 MG, QD
     Dates: start: 20211227
  20. JANUMET [Concomitant]
     Active Substance: METFORMIN HYDROCHLORIDE\SITAGLIPTIN PHOSPHATE
     Dosage: 1 DF, BID
     Dates: start: 20211227
  21. KANARB [Concomitant]
     Dosage: 60 MG, QD
     Dates: start: 20211227
  22. ACETYLCYSTEINE [Concomitant]
     Active Substance: ACETYLCYSTEINE
     Dosage: 200 MG, QD
     Dates: start: 20211227

REACTIONS (5)
  - Head injury [Recovered/Resolved]
  - Subarachnoid haemorrhage [Recovered/Resolved]
  - Quadriplegia [Not Recovered/Not Resolved]
  - Subdural haemorrhage [Recovered/Resolved]
  - Traumatic intracranial haemorrhage [Unknown]

NARRATIVE: CASE EVENT DATE: 20211019
